FAERS Safety Report 6729821-7 (Version None)
Quarter: 2010Q2

REPORT INFORMATION
  Report Type: 
  Country: None (occurrence: None)
  Receive Date: 20100518
  Receipt Date: 20100506
  Transmission Date: 20101027
  Serious: Yes (Other)
  Sender: FDA-Public Use
  Company Number: US-PFIZER INC-2010058366

PATIENT
  Sex: Female
  Weight: 94 kg

DRUGS (5)
  1. TIKOSYN [Suspect]
     Indication: HEART RATE INCREASED
     Dosage: 250 UG, 2X/DAY
     Route: 048
     Dates: start: 20100211
  2. MECLIZINE [Concomitant]
     Indication: DIZZINESS
     Dosage: 12.5 MG, UNK
     Route: 048
  3. METOPROLOL TARTRATE [Concomitant]
     Indication: CARDIAC DISORDER
     Dosage: UNK
     Route: 048
  4. GLYBURIDE [Concomitant]
     Indication: DIABETES MELLITUS
     Dosage: 3 MG, DAILY
     Route: 048
  5. DIOVAN HCT [Concomitant]
     Indication: HYPERTENSION
     Dosage: 320-12.5 MG
     Route: 048

REACTIONS (2)
  - DEAFNESS [None]
  - EAR INFECTION [None]
